FAERS Safety Report 6769403-4 (Version None)
Quarter: 2010Q2

REPORT INFORMATION
  Report Type: 
  Country: None (occurrence: None)
  Receive Date: 20100615
  Receipt Date: 20100609
  Transmission Date: 20101027
  Serious: Yes (Death, Other)
  Sender: FDA-Public Use
  Company Number: PHHY2010US36854

PATIENT
  Sex: Female
  Weight: 51.519 kg

DRUGS (2)
  1. EXJADE [Suspect]
     Indication: SICKLE CELL ANAEMIA
     Dosage: 1000 MG, DAILY
     Route: 048
     Dates: start: 20060101
  2. EXJADE [Suspect]
     Dosage: 1000 MG, QD
     Route: 048
     Dates: start: 20091117

REACTIONS (4)
  - CARDIO-RESPIRATORY ARREST [None]
  - DEATH [None]
  - PELVIC ABSCESS [None]
  - POST PROCEDURAL HAEMORRHAGE [None]
